FAERS Safety Report 26040959 (Version 1)
Quarter: 2025Q4

REPORT INFORMATION
  Report Type: Spontaneous
  Country: KZ (occurrence: KZ)
  Receive Date: 20251113
  Receipt Date: 20251113
  Transmission Date: 20260117
  Serious: Yes (Other)
  Sender: EMD SERONO INC
  Company Number: KZ-Merck Healthcare KGaA-2025057303

PATIENT
  Sex: Female

DRUGS (2)
  1. MAVENCLAD [Suspect]
     Active Substance: CLADRIBINE
     Indication: Multiple sclerosis
     Dosage: FIRST YEAR THERAPY
  2. MAVENCLAD [Suspect]
     Active Substance: CLADRIBINE
     Dosage: SECOND YEAR THERAPY

REACTIONS (12)
  - White blood cell count decreased [Unknown]
  - Neutrophil count decreased [Unknown]
  - Lymphocyte count decreased [Unknown]
  - Haemoglobin decreased [Unknown]
  - Monocyte percentage increased [Unknown]
  - Basophil percentage increased [Unknown]
  - Serum ferritin decreased [Unknown]
  - Red blood cell sedimentation rate increased [Unknown]
  - Blood creatinine decreased [Unknown]
  - Mean cell volume decreased [Unknown]
  - Mean cell haemoglobin concentration decreased [Unknown]
  - Lymphocyte percentage increased [Unknown]
